FAERS Safety Report 17409437 (Version 3)
Quarter: 2020Q1

REPORT INFORMATION
  Report Type: Spontaneous
  Country: CA (occurrence: CA)
  Receive Date: 20200212
  Receipt Date: 20200311
  Transmission Date: 20200409
  Serious: Yes (Hospitalization)
  Sender: FDA-Public Use
  Company Number: CA-PFIZER INC-2020057001

PATIENT
  Age: 77 Year
  Sex: Male

DRUGS (2)
  1. REVATIO [Suspect]
     Active Substance: SILDENAFIL CITRATE
     Indication: CONNECTIVE TISSUE DISORDER
  2. REVATIO [Suspect]
     Active Substance: SILDENAFIL CITRATE
     Indication: PULMONARY ARTERIAL HYPERTENSION
     Dosage: 20 MG TID (3X/DAY)
     Route: 048
     Dates: start: 20191119

REACTIONS (2)
  - Pulmonary oedema [Not Recovered/Not Resolved]
  - Pulmonary fibrosis [Unknown]

NARRATIVE: CASE EVENT DATE: 20200130
